FAERS Safety Report 16651283 (Version 1)
Quarter: 2019Q3

REPORT INFORMATION
  Report Type: Spontaneous
  Country: US (occurrence: US)
  Receive Date: 20190731
  Receipt Date: 20190731
  Transmission Date: 20191004
  Serious: Yes (Other)
  Sender: FDA-Public Use
  Company Number: US-SA-2019SA204785

PATIENT
  Age: 45 Year
  Sex: Female

DRUGS (1)
  1. CEREZYME [Suspect]
     Active Substance: IMIGLUCERASE
     Dosage: UNK
     Route: 042
     Dates: start: 20020322

REACTIONS (7)
  - Atrial fibrillation [Unknown]
  - Cardiac failure congestive [Unknown]
  - Cardiac procedure complication [Unknown]
  - Temperature intolerance [Unknown]
  - Asthenia [Unknown]
  - Hypotension [Unknown]
  - Pulmonary hypertension [Unknown]
